FAERS Safety Report 9301990 (Version 1)
Quarter: 2013Q2

REPORT INFORMATION
  Report Type: Spontaneous
  Country: US (occurrence: US)
  Receive Date: 20130521
  Receipt Date: 20130521
  Transmission Date: 20140414
  Serious: Yes (Death)
  Sender: FDA-Public Use
  Company Number: US-GILEAD-2013-0075532

PATIENT
  Sex: Male

DRUGS (10)
  1. LETAIRIS [Suspect]
     Indication: PULMONARY ARTERIAL HYPERTENSION
     Dosage: 5 MG, QD
     Route: 048
     Dates: start: 20130427
  2. FINASTERIDE [Concomitant]
  3. WARFARIN [Concomitant]
  4. AMLODIPINE [Concomitant]
  5. DIOVAN [Concomitant]
  6. CALCITRIOL [Concomitant]
  7. PREDNISONE [Concomitant]
  8. ADCIRCA [Concomitant]
  9. METOLAZONE [Concomitant]
  10. CATAPRES-TTS [Concomitant]

REACTIONS (1)
  - Coronary artery disease [Fatal]
